FAERS Safety Report 7691113-X (Version None)
Quarter: 2011Q3

REPORT INFORMATION
  Report Type: 
  Country: None (occurrence: None)
  Receive Date: 20110818
  Receipt Date: 20110810
  Transmission Date: 20111222
  Serious: Yes (Other)
  Sender: FDA-Public Use
  Company Number: JP-ROCHE-797136

PATIENT
  Sex: Female

DRUGS (22)
  1. ACTEMRA [Suspect]
     Indication: RHEUMATOID ARTHRITIS
     Route: 041
     Dates: start: 20081110, end: 20090427
  2. ACTEMRA [Suspect]
     Route: 041
     Dates: start: 20091130, end: 20091130
  3. ACTEMRA [Suspect]
     Route: 041
     Dates: start: 20091014, end: 20091014
  4. INFREE [Concomitant]
     Dosage: DRUG: INFREE (INDOMETACIN FARNESIL), FORM; PERORAL AGENT
     Route: 048
  5. ACTEMRA [Suspect]
     Route: 041
     Dates: start: 20090622, end: 20090622
  6. ACTEMRA [Suspect]
     Route: 041
     Dates: start: 20090722, end: 20090722
  7. ACTEMRA [Suspect]
     Route: 041
     Dates: start: 20090817, end: 20090817
  8. ACTEMRA [Suspect]
     Route: 041
     Dates: start: 20100430, end: 20100430
  9. ACTEMRA [Suspect]
     Route: 041
     Dates: start: 20100726, end: 20100726
  10. ACTEMRA [Suspect]
     Route: 041
     Dates: start: 20100405, end: 20100405
  11. ACTEMRA [Suspect]
     Route: 041
     Dates: start: 20100917, end: 20100917
  12. FERROUS CITRATE [Concomitant]
     Dosage: FORM: PERORAL AGENT
     Route: 048
  13. ACTEMRA [Suspect]
     Route: 041
     Dates: start: 20100531, end: 20100531
  14. PROGRAF [Concomitant]
     Dosage: DRUG; PROGRAF (TACROLIMUS HYDRATE), FORM: PERORAL AGNET
     Route: 048
     Dates: start: 20070111
  15. ACTEMRA [Suspect]
     Route: 041
     Dates: start: 20100104, end: 20100104
  16. ACTEMRA [Suspect]
     Route: 041
     Dates: start: 20100823, end: 20100823
  17. ACTEMRA [Suspect]
     Route: 041
     Dates: start: 20101030
  18. PREDNISOLONE [Concomitant]
     Route: 048
  19. CANDESARTAN CILEXETIL [Concomitant]
     Dosage: DRUG: BLOPRESS (CANDESARTAN CILEXETIL), FORM: PERORAL AGENT
     Route: 048
  20. ACTEMRA [Suspect]
     Route: 041
     Dates: start: 20090525, end: 20090525
  21. ACTEMRA [Suspect]
     Route: 041
     Dates: start: 20090916, end: 20090916
  22. ACTEMRA [Suspect]
     Route: 041
     Dates: start: 20100628, end: 20100628

REACTIONS (1)
  - COMPLEX REGIONAL PAIN SYNDROME [None]
